FAERS Safety Report 12590234 (Version 2)
Quarter: 2016Q3

REPORT INFORMATION
  Report Type: Report from Study
  Country: CO (occurrence: CO)
  Receive Date: 20160725
  Receipt Date: 20160831
  Transmission Date: 20161109
  Serious: Yes (Other)
  Sender: FDA-Public Use
  Company Number: CO-ABBVIE-16P-036-1684313-00

PATIENT
  Age: 36 Year
  Sex: Female
  Weight: 78 kg

DRUGS (1)
  1. ZEMPLAR [Suspect]
     Active Substance: PARICALCITOL
     Indication: HYPERPARATHYROIDISM SECONDARY
     Route: 042
     Dates: start: 20120215, end: 20160603

REACTIONS (2)
  - Renal transplant [Recovered/Resolved]
  - Drug dispensing error [Unknown]

NARRATIVE: CASE EVENT DATE: 20120215
